FAERS Safety Report 9761309 (Version 1)
Quarter: 2013Q2

REPORT INFORMATION
  Report Type: Spontaneous
  Country: US (occurrence: None)
  Receive Date: 20130628
  Receipt Date: 20130628
  Transmission Date: 20140414
  Serious: No
  Sender: FDA-Public Use
  Company Number: 201193

PATIENT
  Age: 22 Year
  Sex: Female
  Weight: 65.77 kg

DRUGS (1)
  1. BUTORPHANOL TARTRATE [Suspect]
     Indication: PAIN
     Route: 042
     Dates: start: 20080224, end: 20090224

REACTIONS (4)
  - Maternal exposure during pregnancy [None]
  - Agitation [None]
  - Drug hypersensitivity [None]
  - Pruritus [None]
